FAERS Safety Report 7669138-X (Version None)
Quarter: 2011Q3

REPORT INFORMATION
  Report Type: 
  Country: None (occurrence: None)
  Receive Date: 20110808
  Receipt Date: 20110725
  Transmission Date: 20111222
  Serious: Yes (Other)
  Sender: FDA-Public Use
  Company Number: PHHY2011US62567

PATIENT
  Sex: Female

DRUGS (7)
  1. TEKTURNA [Suspect]
     Indication: HYPERTENSION
     Dosage: 300 MG, QD
     Route: 048
  2. TEKTURNA [Suspect]
     Dosage: 150 MG, UNK
     Route: 048
     Dates: start: 20090407, end: 20110720
  3. CLONIDINE [Concomitant]
     Route: 048
  4. COTONSIN [Concomitant]
     Dosage: 20/12.5 MG PER HOUR
     Route: 048
  5. NEXIUM [Concomitant]
     Dosage: 40 MG, QD
     Route: 048
  6. METOPROLOL TARTRATE [Concomitant]
     Dosage: 50 MG, QD
     Route: 048
  7. LOVASTATIN [Concomitant]
     Dosage: 20 MG, QD
     Route: 048

REACTIONS (2)
  - CARDIAC FAILURE CONGESTIVE [None]
  - BLOOD CREATININE INCREASED [None]
